FAERS Safety Report 5723543-7 (Version None)
Quarter: 2008Q2

REPORT INFORMATION
  Report Type: 
  Country: None (occurrence: None)
  Receive Date: 20080430
  Receipt Date: 20080425
  Transmission Date: 20081010
  Serious: Yes (Other)
  Sender: FDA-Public Use
  Company Number: A0724860A

PATIENT
  Sex: Male

DRUGS (2)
  1. AVODART [Suspect]
     Indication: BENIGN PROSTATIC HYPERPLASIA
     Dosage: .5MG PER DAY
  2. NO CONCURRENT MEDICATION [Concomitant]

REACTIONS (3)
  - MYOGLOBINURIA [None]
  - PYREXIA [None]
  - RHABDOMYOLYSIS [None]
